FAERS Safety Report 11201905 (Version 1)
Quarter: 2015Q2

REPORT INFORMATION
  Report Type: Report from Study
  Country: US (occurrence: None)
  Receive Date: 20150617
  Receipt Date: 20150617
  Transmission Date: 20150821
  Serious: Yes (Hospitalization)
  Sender: FDA-Public Use
  Company Number: US-002043

PATIENT
  Age: 40 Year
  Sex: Female

DRUGS (1)
  1. GATTEX [Suspect]
     Active Substance: TEDUGLUTIDE\WATER
     Indication: SHORT-BOWEL SYNDROME
     Dosage: DF, SUBCUTANEOUS
     Route: 058
     Dates: start: 20140812

REACTIONS (2)
  - Pyrexia [None]
  - Drug dose omission [None]

NARRATIVE: CASE EVENT DATE: 201505
